FAERS Safety Report 5991326-9 (Version None)
Quarter: 2008Q4

REPORT INFORMATION
  Report Type: 
  Country: None (occurrence: None)
  Receive Date: 20081211
  Receipt Date: 20080425
  Transmission Date: 20090506
  Serious: No
  Sender: FDA-Public Use
  Company Number: US-AMGEN-KDL276529

PATIENT
  Sex: Female

DRUGS (3)
  1. ENBREL [Suspect]
     Indication: JUVENILE ARTHRITIS
     Route: 058
     Dates: start: 20080423
  2. ARAVA [Concomitant]
     Route: 048
     Dates: start: 20030101
  3. PLAQUENIL [Concomitant]
     Route: 048
     Dates: start: 20030101

REACTIONS (5)
  - FATIGUE [None]
  - INJECTION SITE ERYTHEMA [None]
  - INJECTION SITE HAEMATOMA [None]
  - INJECTION SITE REACTION [None]
  - INJECTION SITE SWELLING [None]
